FAERS Safety Report 13977371 (Version 2)
Quarter: 2017Q3

REPORT INFORMATION
  Report Type: Report from Study
  Country: CN (occurrence: CN)
  Receive Date: 20170915
  Receipt Date: 20170915
  Transmission Date: 20171128
  Serious: Yes (Other)
  Sender: FDA-Public Use
  Company Number: PHHY2017CN134492

PATIENT
  Age: 24 Year
  Sex: Male

DRUGS (232)
  1. MYFORTIC [Suspect]
     Active Substance: MYCOPHENOLATE SODIUM
     Indication: RENAL TRANSPLANT
     Dosage: 1440 MG, QD
     Route: 065
     Dates: start: 20151029, end: 20151029
  2. MYFORTIC [Suspect]
     Active Substance: MYCOPHENOLATE SODIUM
     Dosage: 540 MG, QD
     Route: 065
     Dates: start: 20151111, end: 20151112
  3. BASILIXIMAB [Suspect]
     Active Substance: BASILIXIMAB
     Indication: RENAL TRANSPLANT
     Dosage: 20 MG, QD
     Route: 065
     Dates: start: 20151028, end: 20151028
  4. CICLOSPORIN [Suspect]
     Active Substance: CYCLOSPORINE
     Indication: RENAL TRANSPLANT
     Dosage: 250 MG, QD
     Route: 065
     Dates: start: 20151031, end: 20151102
  5. METHYLPREDNISOLONE. [Suspect]
     Active Substance: METHYLPREDNISOLONE
     Dosage: 360 MG, QD
     Route: 065
     Dates: start: 20151031, end: 20151031
  6. SODIUM CHLORIDE. [Concomitant]
     Active Substance: SODIUM CHLORIDE
     Dosage: 100 ML, PRN
     Route: 042
     Dates: start: 20151029, end: 20151029
  7. SODIUM CHLORIDE. [Concomitant]
     Active Substance: SODIUM CHLORIDE
     Dosage: 2000 ML, PRN
     Route: 042
     Dates: start: 20151029, end: 20151029
  8. SODIUM CHLORIDE. [Concomitant]
     Active Substance: SODIUM CHLORIDE
     Dosage: 500 ML, PRN
     Route: 042
     Dates: start: 20151102, end: 20151102
  9. DEPAKINE [Concomitant]
     Active Substance: VALPROATE SODIUM
     Indication: EPILEPSY
     Dosage: 300 ML, PRN
     Route: 048
     Dates: start: 20151120, end: 20151120
  10. LINEZOLID. [Concomitant]
     Active Substance: LINEZOLID
     Dosage: 300 MG, BID
     Route: 042
     Dates: start: 20151120, end: 20151122
  11. CALCIUM GLUCONATE. [Concomitant]
     Active Substance: CALCIUM GLUCONATE
     Dosage: 10 ML, PRN
     Route: 042
     Dates: start: 20151122, end: 20151122
  12. ALPROSTADIL. [Concomitant]
     Active Substance: ALPROSTADIL
     Dosage: 10 UG, PRN
     Route: 042
     Dates: start: 20151028, end: 20151028
  13. ALPROSTADIL. [Concomitant]
     Active Substance: ALPROSTADIL
     Dosage: 10 UG, QD
     Route: 042
     Dates: start: 20151102, end: 20151105
  14. HUMAN ALBUMIN [Concomitant]
     Active Substance: ALBUMIN HUMAN
     Dosage: 10 G, BID
     Route: 042
     Dates: start: 20151121, end: 20151122
  15. VIT K1 [Concomitant]
     Active Substance: PHYTONADIONE
     Dosage: 20 MG, PRN
     Route: 042
     Dates: start: 20151122, end: 20151122
  16. NIFEDIPINE. [Concomitant]
     Active Substance: NIFEDIPINE
     Indication: BLOOD PRESSURE INCREASED
     Dosage: 30 MG, QD
     Route: 048
     Dates: start: 20151031, end: 20151031
  17. PROMETHAZINE [Concomitant]
     Active Substance: PROMETHAZINE\PROMETHAZINE HYDROCHLORIDE
     Dosage: 25 MG, QD
     Route: 030
     Dates: start: 20151105, end: 20151112
  18. IRON SUCROSE [Concomitant]
     Active Substance: IRON SUCROSE
     Dosage: 1 DF, QD
     Route: 042
     Dates: start: 20151031, end: 20151105
  19. RECOMBINANT HUMAN ERYTHROPOIETIN [Concomitant]
     Active Substance: ERYTHROPOIETIN
     Dosage: 9999 IU, PRN
     Route: 061
     Dates: start: 20151119, end: 20151119
  20. RECOMBINANT HUMAN ERYTHROPOIETIN [Concomitant]
     Active Substance: ERYTHROPOIETIN
     Dosage: 9999 IU, PRN
     Route: 061
     Dates: start: 20151121, end: 20151121
  21. DEPAKINE [Concomitant]
     Active Substance: VALPROATE SODIUM
     Indication: EPILEPSY
     Dosage: 2 DF, PRN
     Route: 042
     Dates: start: 20151120, end: 20151120
  22. MICAFUNGIN SODIUM [Concomitant]
     Active Substance: MICAFUNGIN SODIUM
     Indication: ANTI-INFECTIVE THERAPY
     Dosage: 100 MG, QD
     Route: 042
     Dates: start: 20151115, end: 20151115
  23. FUROSEMIDE. [Concomitant]
     Active Substance: FUROSEMIDE
     Dosage: 40 MG, QD
     Route: 042
     Dates: start: 20151118, end: 20151120
  24. LEVOCARNITINE. [Concomitant]
     Active Substance: LEVOCARNITINE
     Dosage: 2 DF, PRN
     Route: 042
     Dates: start: 20151029, end: 20151031
  25. BASILIXIMAB [Suspect]
     Active Substance: BASILIXIMAB
     Dosage: 20 MG, QD
     Route: 065
     Dates: start: 20151101, end: 20151101
  26. SODIUM CHLORIDE. [Concomitant]
     Active Substance: SODIUM CHLORIDE
     Dosage: 250 ML, PRN
     Route: 042
     Dates: start: 20151030, end: 20151030
  27. SODIUM CHLORIDE. [Concomitant]
     Active Substance: SODIUM CHLORIDE
     Dosage: 250 ML, PRN
     Route: 042
     Dates: start: 20151120, end: 20151120
  28. SODIUM CHLORIDE. [Concomitant]
     Active Substance: SODIUM CHLORIDE
     Dosage: 500 ML, PRN
     Route: 042
     Dates: start: 20151031, end: 20151031
  29. FLUCONAZOLE. [Concomitant]
     Active Substance: FLUCONAZOLE
     Indication: ANTI-INFECTIVE THERAPY
     Dosage: 400 MG, PRN
     Route: 042
     Dates: start: 20151121, end: 20151121
  30. BETALOC [Concomitant]
     Active Substance: METOPROLOL TARTRATE
     Dosage: 5 MG, PRN
     Route: 048
     Dates: start: 20151029, end: 20151029
  31. CANCIDAS [Concomitant]
     Active Substance: CASPOFUNGIN ACETATE
     Dosage: 50 MG, PRN
     Route: 042
     Dates: start: 20151117, end: 20151121
  32. OSELTAMIVIR PHOSPHATE. [Concomitant]
     Active Substance: OSELTAMIVIR PHOSPHATE
     Dosage: 75 MG, BID
     Route: 048
     Dates: start: 20151115, end: 20151120
  33. AB-ATROPINE SULFAT [Concomitant]
     Indication: PRODUCT USED FOR UNKNOWN INDICATION
     Dosage: 21 MG, PRN
     Route: 042
     Dates: start: 20151122, end: 20151122
  34. POTASSIUM CHLORIDE. [Concomitant]
     Active Substance: POTASSIUM CHLORIDE
     Indication: MINERAL SUPPLEMENTATION
     Dosage: 1000 MG, TID
     Route: 048
     Dates: start: 20151106, end: 20151112
  35. HUMAN ALBUMIN [Concomitant]
     Active Substance: ALBUMIN HUMAN
     Dosage: 10 G, PRN
     Route: 042
     Dates: start: 20151116, end: 20151116
  36. SODIUM BICARBONATE. [Concomitant]
     Active Substance: SODIUM BICARBONATE
     Dosage: 125 ML, PRN
     Route: 042
     Dates: start: 20151122, end: 20151122
  37. IPRATROPIUM BROMIDE. [Concomitant]
     Active Substance: IPRATROPIUM BROMIDE
     Indication: PRODUCTIVE COUGH
     Dosage: 1 DF, TID
     Route: 055
     Dates: start: 20151029, end: 20151105
  38. IPRATROPIUM BROMIDE. [Concomitant]
     Active Substance: IPRATROPIUM BROMIDE
     Dosage: 1 DF, TID
     Route: 055
     Dates: start: 20151111, end: 20151120
  39. AMBROXOL HYDROCHLORIDE [Concomitant]
     Active Substance: AMBROXOL HYDROCHLORIDE
     Dosage: 150 MG, PRN
     Route: 042
     Dates: start: 20151117, end: 20151117
  40. DOPAMINE HYDROCHLORIDE. [Concomitant]
     Active Substance: DOPAMINE HYDROCHLORIDE
     Dosage: 180 MG, PRN
     Route: 042
     Dates: start: 20151121, end: 20151121
  41. CETIRIZINE HYDROCHLORIDE. [Concomitant]
     Active Substance: CETIRIZINE HYDROCHLORIDE
     Indication: HYPERSENSITIVITY
     Dosage: 10 MG, PRN
     Route: 048
     Dates: start: 20151105, end: 20151105
  42. MAGNESIUM ISOGLYCYRRHIZINATE [Concomitant]
     Active Substance: MAGNESIUM ISOGLYCYRRHIZINATE
     Indication: PROPHYLAXIS
     Dosage: 40 ML, PRN
     Route: 042
     Dates: start: 20151029, end: 20151029
  43. RECOMBINANT HUMAN ERYTHROPOIETIN [Concomitant]
     Active Substance: ERYTHROPOIETIN
     Dosage: 9999 IU, PRN
     Route: 061
     Dates: start: 20151031, end: 20151031
  44. RECOMBINANT HUMAN ERYTHROPOIETIN [Concomitant]
     Active Substance: ERYTHROPOIETIN
     Dosage: 9999 IU, PRN
     Route: 061
     Dates: start: 20151111, end: 20151111
  45. RECOMBINANT HUMAN ERYTHROPOIETIN [Concomitant]
     Active Substance: ERYTHROPOIETIN
     Dosage: 150 UG, PRN
     Route: 061
     Dates: start: 20151121, end: 20151121
  46. OMEPRAZOLE SODIUM [Concomitant]
     Active Substance: OMEPRAZOLE SODIUM
     Dosage: 40 MG, BID
     Route: 042
     Dates: start: 20151029, end: 20151031
  47. MICAFUNGIN SODIUM [Concomitant]
     Active Substance: MICAFUNGIN SODIUM
     Indication: INFLAMMATION
     Dosage: 100 MG, PRN
     Route: 042
     Dates: start: 20151114, end: 20151115
  48. MICAFUNGIN SODIUM [Concomitant]
     Active Substance: MICAFUNGIN SODIUM
     Dosage: 150 MG, QD
     Route: 042
     Dates: start: 20151115, end: 20151116
  49. ULINASTATIN [Concomitant]
     Active Substance: ULINASTATIN
     Indication: CARDIOVASCULAR INSUFFICIENCY
     Dosage: 20 IU, PRN
     Route: 042
     Dates: start: 20151121, end: 20151121
  50. VANCOMYCIN HYDROCHLORIDE. [Concomitant]
     Active Substance: VANCOMYCIN HYDROCHLORIDE
     Indication: INFLAMMATION
     Dosage: 500 MG, PRN
     Route: 042
     Dates: start: 20151113, end: 20151113
  51. MYFORTIC [Suspect]
     Active Substance: MYCOPHENOLATE SODIUM
     Indication: PROPHYLAXIS AGAINST TRANSPLANT REJECTION
     Dosage: 1080 MG, QD
     Route: 065
     Dates: start: 20151030, end: 20151104
  52. CICLOSPORIN [Suspect]
     Active Substance: CYCLOSPORINE
     Dosage: 75 MG, QD
     Route: 065
     Dates: start: 20151104, end: 20151104
  53. METHYLPREDNISOLONE. [Suspect]
     Active Substance: METHYLPREDNISOLONE
     Dosage: 40 MG, QD
     Route: 065
     Dates: start: 20151105, end: 20151105
  54. TACROLIMUS. [Suspect]
     Active Substance: TACROLIMUS
     Dosage: 3.5 MG, QD
     Route: 065
     Dates: start: 20151111, end: 20151111
  55. SODIUM CHLORIDE. [Concomitant]
     Active Substance: SODIUM CHLORIDE
     Dosage: 100 ML, PRN
     Route: 042
     Dates: start: 20151105, end: 20151105
  56. SODIUM CHLORIDE. [Concomitant]
     Active Substance: SODIUM CHLORIDE
     Dosage: 50 ML, PRN
     Route: 042
     Dates: start: 20151116, end: 20151116
  57. PHENOBARBITAL. [Concomitant]
     Active Substance: PHENOBARBITAL
     Indication: SEDATION
     Dosage: 100 MG, PRN
     Route: 030
     Dates: start: 20151028, end: 20151028
  58. DIAZEPAM. [Concomitant]
     Active Substance: DIAZEPAM
     Indication: SEDATION
     Dosage: 20 MG, PRN
     Route: 042
     Dates: start: 20151119, end: 20151119
  59. MOTILIUM [Concomitant]
     Active Substance: DOMPERIDONE
     Indication: ABDOMINAL DISTENSION
     Dosage: 10 MG, TID
     Route: 048
     Dates: start: 20151119, end: 20151120
  60. ETAMSYLATE [Concomitant]
     Active Substance: ETHAMSYLATE
     Indication: HAEMOSTASIS
     Dosage: 2000 MG, PRN
     Route: 042
     Dates: start: 20151122, end: 20151122
  61. OSELTAMIVIR PHOSPHATE. [Concomitant]
     Active Substance: OSELTAMIVIR PHOSPHATE
     Dosage: 75 MG, PRN
     Route: 048
     Dates: start: 20151115, end: 20151115
  62. SMECTA [Concomitant]
     Active Substance: MONTMORILLONITE
     Indication: DIARRHOEA
     Dosage: 6 G, PRN
     Route: 048
     Dates: start: 20151101, end: 20151101
  63. MOSAPRIDE [Concomitant]
     Active Substance: MOSAPRIDE
     Indication: ABDOMINAL DISTENSION
     Dosage: 5 MG, TID
     Route: 048
     Dates: start: 20151119, end: 20151120
  64. ALPROSTADIL. [Concomitant]
     Active Substance: ALPROSTADIL
     Dosage: 10 UG, QD
     Route: 042
     Dates: start: 20151105, end: 20151120
  65. HUMAN ALBUMIN [Concomitant]
     Active Substance: ALBUMIN HUMAN
     Dosage: 10 G, PRN
     Route: 042
     Dates: start: 20151029, end: 20151029
  66. HUMAN ALBUMIN [Concomitant]
     Active Substance: ALBUMIN HUMAN
     Dosage: 20 G, QD
     Route: 042
     Dates: start: 20151108, end: 20151108
  67. COMPOUND SODIUM LACTATE RINGER LACTAT [Concomitant]
     Dosage: 500 ML, PRN
     Route: 042
     Dates: start: 20151101, end: 20151102
  68. AMBROXOL HYDROCHLORIDE [Concomitant]
     Active Substance: AMBROXOL HYDROCHLORIDE
     Dosage: 150 MG, PRN
     Route: 042
     Dates: start: 20151122, end: 20151122
  69. DILTIAZEM HYDROCHLORIDE. [Concomitant]
     Active Substance: DILTIAZEM HYDROCHLORIDE
     Dosage: 30 MG, BID
     Route: 048
     Dates: start: 20151104, end: 20151109
  70. MOXIFLOXACIN HYDROCHLORIDE. [Concomitant]
     Active Substance: MOXIFLOXACIN HYDROCHLORIDE
     Indication: INFLAMMATION
     Dosage: 400 MG, PRN
     Route: 042
     Dates: start: 20151113, end: 20151113
  71. ADRENALINE HYDROCHLORIDE [Concomitant]
     Indication: PRODUCT USED FOR UNKNOWN INDICATION
     Dosage: 5 MG, PRN
     Dates: start: 20151122, end: 20151122
  72. CETIRIZINE HYDROCHLORIDE. [Concomitant]
     Active Substance: CETIRIZINE HYDROCHLORIDE
     Dosage: 10 MG, QD
     Route: 048
     Dates: start: 20151105, end: 20151112
  73. INSULIN [Concomitant]
     Active Substance: INSULIN NOS
     Dosage: 4 IU, PRN
     Route: 042
     Dates: start: 20151120, end: 20151120
  74. NORADRENALINI TARTRAS [Concomitant]
     Indication: PRODUCT USED FOR UNKNOWN INDICATION
     Dosage: 10.5 MG, PRN
     Route: 042
     Dates: start: 20151122, end: 20151122
  75. ESOMEPRAZOLE SODIUM. [Concomitant]
     Active Substance: ESOMEPRAZOLE SODIUM
     Dosage: 40 MG, BID
     Route: 042
     Dates: start: 20151121, end: 20151122
  76. DOXOFYLLINE [Concomitant]
     Active Substance: DOXOFYLLINE
     Indication: WHEEZING
     Dosage: 200 MG, PRN
     Route: 042
     Dates: start: 20151029, end: 20151029
  77. MICAFUNGIN SODIUM [Concomitant]
     Active Substance: MICAFUNGIN SODIUM
     Dosage: 50 MG, QD
     Route: 042
     Dates: start: 20151115, end: 20151115
  78. DICLOFENAC SODIUM. [Concomitant]
     Active Substance: DICLOFENAC SODIUM
     Indication: SEIZURE
     Dosage: 2 DF, PRN
     Route: 030
     Dates: start: 20151021, end: 20151021
  79. CEFOTIAM HYDROCHLORIDE [Concomitant]
     Active Substance: CEFOTIAM HYDROCHLORIDE
     Indication: INFLAMMATION
     Dosage: 2000 MG, PRN
     Route: 042
     Dates: start: 20151029, end: 20151029
  80. FUROSEMIDE. [Concomitant]
     Active Substance: FUROSEMIDE
     Dosage: 120 MG, PRN
     Route: 042
     Dates: start: 20151031, end: 20151031
  81. FUROSEMIDE. [Concomitant]
     Active Substance: FUROSEMIDE
     Dosage: 40 MG, PRN
     Route: 042
     Dates: start: 20151031, end: 20151101
  82. FUROSEMIDE. [Concomitant]
     Active Substance: FUROSEMIDE
     Dosage: 40 MG, PRN
     Route: 042
     Dates: start: 20151116, end: 20151116
  83. METHYLPREDNISOLONE. [Suspect]
     Active Substance: METHYLPREDNISOLONE
     Dosage: 80 MG, QD
     Route: 065
     Dates: start: 20151120, end: 20151120
  84. TACROLIMUS. [Suspect]
     Active Substance: TACROLIMUS
     Indication: PROPHYLAXIS AGAINST TRANSPLANT REJECTION
     Dosage: 5 MG, QD
     Route: 065
     Dates: start: 20151029, end: 20151031
  85. SODIUM CHLORIDE. [Concomitant]
     Active Substance: SODIUM CHLORIDE
     Dosage: 100 ML, PRN
     Route: 042
     Dates: start: 20151028, end: 20151028
  86. SODIUM CHLORIDE. [Concomitant]
     Active Substance: SODIUM CHLORIDE
     Dosage: 400 ML, PRN
     Route: 042
     Dates: start: 20151121, end: 20151121
  87. BACILLICHEN [Concomitant]
     Indication: DIARRHOEA
     Dosage: 500 MG, TID
     Route: 048
     Dates: start: 20151119, end: 20151120
  88. PARACETAMOL [Concomitant]
     Active Substance: ACETAMINOPHEN
     Indication: BODY TEMPERATURE INCREASED
     Dosage: 250 MG, PRN
     Route: 050
     Dates: start: 20151120, end: 20151120
  89. DESLANOSIDE [Concomitant]
     Active Substance: DESLANOSIDE
     Indication: CARDIAC FAILURE
     Dosage: 400 UG, PRN
     Route: 042
     Dates: start: 20151121, end: 20151121
  90. DESLANOSIDE [Concomitant]
     Active Substance: DESLANOSIDE
     Dosage: 0.4 MG, PRN
     Route: 042
     Dates: start: 20151122, end: 20151122
  91. VITAMIN B6 [Concomitant]
     Active Substance: PYRIDOXINE HYDROCHLORIDE
     Indication: PRODUCT USED FOR UNKNOWN INDICATION
     Dosage: 400 MG, PRN
     Route: 042
     Dates: start: 20151120, end: 20151120
  92. VIT K1 [Concomitant]
     Active Substance: PHYTONADIONE
     Indication: HAEMOSTASIS
     Dosage: 10 MG, PRN
     Route: 042
     Dates: start: 20151122, end: 20151122
  93. NIFEDIPINE. [Concomitant]
     Active Substance: NIFEDIPINE
     Dosage: 30 MG, QD
     Route: 048
     Dates: start: 20151103, end: 20151103
  94. APO NITROGLYCERIN [Concomitant]
     Indication: BLOOD PRESSURE INCREASED
     Dosage: 20 MG, PRN
     Route: 042
     Dates: start: 20151120, end: 20151120
  95. AMBROXOL HYDROCHLORIDE [Concomitant]
     Active Substance: AMBROXOL HYDROCHLORIDE
     Dosage: 30 MG, TID
     Route: 042
     Dates: start: 20151029, end: 20151105
  96. AMBROXOL HYDROCHLORIDE [Concomitant]
     Active Substance: AMBROXOL HYDROCHLORIDE
     Dosage: 1350 MG, PRN
     Route: 042
     Dates: start: 20151120, end: 20151120
  97. DOPAMINE HYDROCHLORIDE. [Concomitant]
     Active Substance: DOPAMINE HYDROCHLORIDE
     Dosage: 420 MG, PRN
     Route: 042
     Dates: start: 20151122, end: 20151122
  98. MOXIFLOXACIN HYDROCHLORIDE. [Concomitant]
     Active Substance: MOXIFLOXACIN HYDROCHLORIDE
     Indication: ANTI-INFECTIVE THERAPY
     Dosage: 400 MG, QD
     Route: 042
     Dates: start: 20151113, end: 20151117
  99. PROMETHAZINE [Concomitant]
     Active Substance: PROMETHAZINE\PROMETHAZINE HYDROCHLORIDE
     Dosage: 25 MG, PRN
     Route: 030
     Dates: start: 20151105, end: 20151105
  100. ESOMEPRAZOLE SODIUM. [Concomitant]
     Active Substance: ESOMEPRAZOLE SODIUM
     Indication: GASTRITIS PROPHYLAXIS
     Dosage: 40 MG, PRN
     Route: 042
     Dates: start: 20151121, end: 20151121
  101. OMEPRAZOLE SODIUM [Concomitant]
     Active Substance: OMEPRAZOLE SODIUM
     Dosage: 40 MG, PRN
     Route: 042
     Dates: start: 20151029, end: 20151029
  102. MEROPENEM. [Concomitant]
     Active Substance: MEROPENEM
     Indication: INFLAMMATION
     Dosage: 500 MG, TID
     Route: 042
     Dates: start: 20151112, end: 20151113
  103. MEROPENEM. [Concomitant]
     Active Substance: MEROPENEM
     Dosage: 500 MG, QD
     Route: 042
     Dates: start: 20151121, end: 20151122
  104. FUROSEMIDE. [Concomitant]
     Active Substance: FUROSEMIDE
     Dosage: 40 MG, QD
     Route: 042
     Dates: start: 20151030, end: 20151106
  105. MYFORTIC [Suspect]
     Active Substance: MYCOPHENOLATE SODIUM
     Dosage: 360 MG, QD
     Route: 065
     Dates: start: 20151105, end: 20151110
  106. METHYLPREDNISOLONE. [Suspect]
     Active Substance: METHYLPREDNISOLONE
     Dosage: 40 MG, QD
     Route: 065
     Dates: start: 20151120, end: 20151120
  107. PREDNISONE. [Suspect]
     Active Substance: PREDNISONE
     Dosage: 20 MG, QD
     Route: 065
     Dates: start: 20151112, end: 20151115
  108. TACROLIMUS. [Suspect]
     Active Substance: TACROLIMUS
     Dosage: 2 MG, QD
     Route: 065
     Dates: start: 20151104, end: 20151104
  109. OXCARBAZEPINE. [Concomitant]
     Active Substance: OXCARBAZEPINE
     Indication: EPILEPSY
     Dosage: 3000 MG, PRN
     Route: 048
     Dates: start: 20151120, end: 20151120
  110. FLUCONAZOLE. [Concomitant]
     Active Substance: FLUCONAZOLE
     Dosage: 400 MG, QD
     Route: 042
     Dates: start: 20151121, end: 20151122
  111. BETALOC [Concomitant]
     Active Substance: METOPROLOL TARTRATE
     Dosage: 47.5 MG, PRN
     Route: 042
     Dates: start: 20151029, end: 20151029
  112. ALPROSTADIL. [Concomitant]
     Active Substance: ALPROSTADIL
     Indication: CARDIOVASCULAR INSUFFICIENCY
     Dosage: 30 UG, PRN
     Route: 042
     Dates: start: 20151021, end: 20151021
  113. ALPROSTADIL. [Concomitant]
     Active Substance: ALPROSTADIL
     Dosage: 10 UG, QD
     Route: 042
     Dates: start: 20151029, end: 20151031
  114. HUMAN ALBUMIN [Concomitant]
     Active Substance: ALBUMIN HUMAN
     Indication: SUPPLEMENTATION THERAPY
     Dosage: 10 G, PRN
     Route: 042
     Dates: start: 20151028, end: 20151028
  115. HUMAN ALBUMIN [Concomitant]
     Active Substance: ALBUMIN HUMAN
     Dosage: 20 G, PRN
     Route: 042
     Dates: start: 20151030, end: 20151101
  116. HUMAN ALBUMIN [Concomitant]
     Active Substance: ALBUMIN HUMAN
     Dosage: 10 G, QD
     Route: 042
     Dates: start: 20151116, end: 20151122
  117. HUMAN ALBUMIN [Concomitant]
     Active Substance: ALBUMIN HUMAN
     Dosage: 10 G, PRN
     Route: 042
     Dates: start: 20151121, end: 20151121
  118. AMBROXOL HYDROCHLORIDE [Concomitant]
     Active Substance: AMBROXOL HYDROCHLORIDE
     Dosage: 15 MG, TID
     Route: 042
     Dates: start: 20151111, end: 20151120
  119. AMBROXOL HYDROCHLORIDE [Concomitant]
     Active Substance: AMBROXOL HYDROCHLORIDE
     Dosage: 150 MG, BID
     Route: 042
     Dates: start: 20151120, end: 20151122
  120. LOBELINE HYDROCHLORIDE [Concomitant]
     Indication: PRODUCT USED FOR UNKNOWN INDICATION
     Dosage: 3 MG, PRN
     Route: 042
     Dates: start: 20151120, end: 20151120
  121. INSULIN [Concomitant]
     Active Substance: INSULIN NOS
     Indication: PRODUCT USED FOR UNKNOWN INDICATION
     Dosage: 4 IU, PRN
     Route: 042
     Dates: start: 20151120, end: 20151120
  122. RECOMBINANT HUMAN ERYTHROPOIETIN [Concomitant]
     Active Substance: ERYTHROPOIETIN
     Indication: PRODUCT USED FOR UNKNOWN INDICATION
     Dosage: 9999 IU, PRN
     Route: 061
     Dates: start: 20151029, end: 20151029
  123. DEPAKINE [Concomitant]
     Active Substance: VALPROATE SODIUM
     Dosage: 1 DF, PRN
     Route: 042
     Dates: start: 20151121, end: 20151121
  124. DEPAKINE [Concomitant]
     Active Substance: VALPROATE SODIUM
     Dosage: 3 DF, PRN
     Route: 042
     Dates: start: 20151121, end: 20151121
  125. HEPARIN SODIUM. [Concomitant]
     Active Substance: HEPARIN SODIUM
     Dosage: 2500 IU, UNK
     Route: 042
     Dates: start: 20151031, end: 20151112
  126. DOXOFYLLINE [Concomitant]
     Active Substance: DOXOFYLLINE
     Dosage: 200 MG, QD
     Route: 042
     Dates: start: 20151029, end: 20151031
  127. DOXOFYLLINE [Concomitant]
     Active Substance: DOXOFYLLINE
     Dosage: 200 MG, BID
     Route: 042
     Dates: start: 20151112, end: 20151122
  128. COENZYME COMPLEX [Concomitant]
     Active Substance: UNSPECIFIED INGREDIENT
     Dosage: 2 DF, QD
     Route: 042
     Dates: start: 20151029, end: 20151031
  129. METHYLPREDNISOLONE NA SUCCINATE [Concomitant]
     Active Substance: METHYLPREDNISOLONE SODIUM SUCCINATE
     Dosage: 40 MG, QD
     Route: 042
     Dates: start: 20151105, end: 20151112
  130. HAEMOCOAGULASE [Concomitant]
     Indication: HAEMOSTASIS
     Dosage: 1 IU, PRN
     Route: 042
     Dates: start: 20151122, end: 20151122
  131. PHOSPHOCREATINE SODIUM [Concomitant]
     Active Substance: PHOSPHOCREATINE SODIUM
     Dosage: 1 G, QD
     Route: 042
     Dates: start: 20151029, end: 20151031
  132. DICLOFENAC SODIUM. [Concomitant]
     Active Substance: DICLOFENAC SODIUM
     Indication: ANALGESIC THERAPY
  133. TEICOPLANIN [Concomitant]
     Active Substance: TEICOPLANIN
     Indication: ANTI-INFECTIVE THERAPY
     Dosage: 400 MG, QD
     Route: 042
     Dates: start: 20151117, end: 20151117
  134. VANCOMYCIN HYDROCHLORIDE. [Concomitant]
     Active Substance: VANCOMYCIN HYDROCHLORIDE
     Indication: ANTI-INFECTIVE THERAPY
     Dosage: 500 MG, BID
     Route: 042
     Dates: start: 20151113, end: 20151117
  135. FUROSEMIDE. [Concomitant]
     Active Substance: FUROSEMIDE
     Indication: POLYURIA
     Dosage: 200 MG, PRN
     Route: 042
     Dates: start: 20151029, end: 20151029
  136. FUROSEMIDE. [Concomitant]
     Active Substance: FUROSEMIDE
     Dosage: 120 MG, PRN
     Route: 042
     Dates: start: 20151030, end: 20151030
  137. FUROSEMIDE. [Concomitant]
     Active Substance: FUROSEMIDE
     Dosage: 40 MG, PRN
     Route: 042
     Dates: start: 20151104, end: 20151105
  138. FUROSEMIDE. [Concomitant]
     Active Substance: FUROSEMIDE
     Dosage: 80 MG, PRN
     Route: 042
     Dates: start: 20151102, end: 20151103
  139. FUROSEMIDE. [Concomitant]
     Active Substance: FUROSEMIDE
     Dosage: 80 MG, PRN
     Route: 042
     Dates: start: 20151115, end: 20151115
  140. CICLOSPORIN [Suspect]
     Active Substance: CYCLOSPORINE
     Dosage: 250 MG, QD
     Route: 065
     Dates: start: 20151116, end: 20151120
  141. METHYLPREDNISOLONE. [Suspect]
     Active Substance: METHYLPREDNISOLONE
     Dosage: 400 MG, QD
     Route: 065
     Dates: start: 20151030, end: 20151030
  142. METHYLPREDNISOLONE. [Suspect]
     Active Substance: METHYLPREDNISOLONE
     Dosage: 40 MG, QD
     Route: 065
     Dates: start: 20151115, end: 20151120
  143. SODIUM CHLORIDE. [Concomitant]
     Active Substance: SODIUM CHLORIDE
     Indication: PRODUCT USED FOR UNKNOWN INDICATION
     Dosage: 100 ML, QD
     Route: 042
     Dates: start: 20151020, end: 20151101
  144. SODIUM CHLORIDE. [Concomitant]
     Active Substance: SODIUM CHLORIDE
     Dosage: 100 ML, QD
     Route: 042
     Dates: start: 20151116, end: 20151122
  145. SODIUM CHLORIDE. [Concomitant]
     Active Substance: SODIUM CHLORIDE
     Dosage: 1500 ML, PRN
     Route: 042
     Dates: start: 20151029, end: 20151029
  146. PHENOBARBITAL. [Concomitant]
     Active Substance: PHENOBARBITAL
     Dosage: 100 MG, PRN
     Route: 042
     Dates: start: 20151119, end: 20151119
  147. GLUTAMINE [Concomitant]
     Active Substance: GLUTAMINE
     Indication: GASTRITIS PROPHYLAXIS
     Dosage: 670 MG, TID
     Route: 048
     Dates: start: 20151119, end: 20151120
  148. LINEZOLID. [Concomitant]
     Active Substance: LINEZOLID
     Indication: ANTI-INFECTIVE THERAPY
     Dosage: 300 MG, PRN
     Route: 042
     Dates: start: 20151120, end: 20151120
  149. SODIUM CHLORIDE. [Concomitant]
     Active Substance: SODIUM CHLORIDE
     Indication: SUPPLEMENTATION THERAPY
     Dosage: 30 ML, PRN
     Route: 042
     Dates: start: 20151120, end: 20151120
  150. CALCIUM GLUCONATE. [Concomitant]
     Active Substance: CALCIUM GLUCONATE
     Dosage: 10 ML, PRN
     Route: 042
     Dates: start: 20151121, end: 20151121
  151. VITAMIN C [Concomitant]
     Active Substance: ASCORBIC ACID
     Indication: PRODUCT USED FOR UNKNOWN INDICATION
     Dosage: 4000 MG, PRN
     Route: 042
     Dates: start: 20151120, end: 20151120
  152. BUDESONIDE. [Concomitant]
     Active Substance: BUDESONIDE
     Indication: PRODUCTIVE COUGH
     Dosage: 1 DF, TID
     Route: 055
     Dates: start: 20151029, end: 20151105
  153. BUDESONIDE. [Concomitant]
     Active Substance: BUDESONIDE
     Dosage: 1 DF, TID
     Route: 055
     Dates: start: 20151111, end: 20151120
  154. NIFEDIPINE. [Concomitant]
     Active Substance: NIFEDIPINE
     Dosage: 30 MG, QD
     Route: 048
     Dates: start: 20151118, end: 20151118
  155. AMBROXOL HYDROCHLORIDE [Concomitant]
     Active Substance: AMBROXOL HYDROCHLORIDE
     Dosage: 30 MG, TID
     Route: 042
     Dates: start: 20151112, end: 20151117
  156. DILTIAZEM HYDROCHLORIDE. [Concomitant]
     Active Substance: DILTIAZEM HYDROCHLORIDE
     Indication: PRODUCT USED FOR UNKNOWN INDICATION
     Dosage: 30 MG, BID
     Route: 048
     Dates: start: 20151029, end: 20151101
  157. DOBUTAMINE HYDROCHLORIDE. [Concomitant]
     Active Substance: DOBUTAMINE HYDROCHLORIDE
     Indication: BLOOD PRESSURE INCREASED
     Dosage: 20 MG, PRN
     Route: 042
     Dates: start: 20151122, end: 20151122
  158. IMODIUM [Concomitant]
     Active Substance: LOPERAMIDE HYDROCHLORIDE
     Indication: DIARRHOEA
     Dosage: 4 MG, PRN
     Route: 048
     Dates: start: 20151101, end: 20151101
  159. TRIMETAZIDINE HYDROCHLORIDE [Concomitant]
     Active Substance: TRIMETAZIDINE DIHYDROCHLORIDE
     Indication: PROPHYLAXIS
     Dosage: 20 MG, TID
     Route: 048
     Dates: start: 20151030, end: 20151120
  160. PROMETHAZINE [Concomitant]
     Active Substance: PROMETHAZINE\PROMETHAZINE HYDROCHLORIDE
     Indication: HYPERSENSITIVITY
     Dosage: 25 MG, PRN
     Route: 030
     Dates: start: 20151030, end: 20151030
  161. MAGNESIUM ISOGLYCYRRHIZINATE [Concomitant]
     Active Substance: MAGNESIUM ISOGLYCYRRHIZINATE
     Dosage: 40 ML, QD
     Route: 042
     Dates: start: 20151121, end: 20151122
  162. IRON SUCROSE [Concomitant]
     Active Substance: IRON SUCROSE
     Dosage: 2 DF, QD
     Route: 042
     Dates: start: 20151029, end: 20151031
  163. RECOMBINANT HUMAN ERYTHROPOIETIN [Concomitant]
     Active Substance: ERYTHROPOIETIN
     Dosage: 9999 IU, PRN
     Route: 061
     Dates: start: 20151102, end: 20151102
  164. OMEPRAZOLE SODIUM [Concomitant]
     Active Substance: OMEPRAZOLE SODIUM
     Dosage: 40 MG, PRN
     Route: 042
     Dates: start: 20151103, end: 20151103
  165. OMEPRAZOLE SODIUM [Concomitant]
     Active Substance: OMEPRAZOLE SODIUM
     Dosage: 40 MG, BID
     Route: 042
     Dates: start: 20151103, end: 20151105
  166. SODIUM NITROPRUSSIDE. [Concomitant]
     Active Substance: SODIUM NITROPRUSSIDE
     Indication: BLOOD PRESSURE INCREASED
     Dosage: 150 MG, PRN
     Route: 042
     Dates: start: 20151120, end: 20151120
  167. FUROSEMIDE. [Concomitant]
     Active Substance: FUROSEMIDE
     Dosage: 40 MG, PRN
     Route: 042
     Dates: start: 20151111, end: 20151111
  168. FUROSEMIDE. [Concomitant]
     Active Substance: FUROSEMIDE
     Dosage: 80 MG, PRN
     Route: 042
     Dates: start: 20151107, end: 20151110
  169. FUROSEMIDE. [Concomitant]
     Active Substance: FUROSEMIDE
     Dosage: 80 MG, PRN
     Route: 042
     Dates: start: 20151114, end: 20151114
  170. CICLOSPORIN [Suspect]
     Active Substance: CYCLOSPORINE
     Dosage: 200 MG, QD
     Route: 065
     Dates: start: 20151112, end: 20151115
  171. METHYLPREDNISOLONE. [Suspect]
     Active Substance: METHYLPREDNISOLONE
     Indication: PROPHYLAXIS AGAINST TRANSPLANT REJECTION
     Dosage: 500 MG, QD
     Route: 065
     Dates: start: 20151028, end: 20151028
  172. METHYLPREDNISOLONE. [Suspect]
     Active Substance: METHYLPREDNISOLONE
     Dosage: 160 MG, QD
     Route: 065
     Dates: start: 20151120, end: 20151120
  173. TACROLIMUS. [Suspect]
     Active Substance: TACROLIMUS
     Dosage: 2 MG, QD
     Route: 065
     Dates: start: 20151105, end: 20151108
  174. ANTITHYMOCYTE IMMUNOGLOBULIN (RABBIT) [Suspect]
     Active Substance: LAPINE T-LYMPHOCYTE IMMUNE GLOBULIN
     Indication: PROPHYLAXIS AGAINST TRANSPLANT REJECTION
     Dosage: 100 MG, QD
     Route: 065
     Dates: start: 20151105, end: 20151112
  175. SODIUM CHLORIDE. [Concomitant]
     Active Substance: SODIUM CHLORIDE
     Dosage: 100 ML, QD
     Route: 042
     Dates: start: 20151105, end: 20151112
  176. SODIUM CHLORIDE. [Concomitant]
     Active Substance: SODIUM CHLORIDE
     Dosage: 50 ML, BID
     Route: 042
     Dates: start: 20151121, end: 20151122
  177. AMINOMETHYLBENZOIC ACID [Concomitant]
     Active Substance: AMINOMETHYLBENZOIC ACID
     Indication: HAEMOSTASIS
     Dosage: 200 MG, PRN
     Route: 042
     Dates: start: 20151122, end: 20151122
  178. BETALOC [Concomitant]
     Active Substance: METOPROLOL TARTRATE
     Indication: BLOOD PRESSURE INCREASED
     Dosage: 5 MG, PRN
     Route: 048
     Dates: start: 20151029, end: 20151029
  179. CALCIUM GLUCONATE. [Concomitant]
     Active Substance: CALCIUM GLUCONATE
     Indication: MINERAL SUPPLEMENTATION
     Dosage: 60 ML, PRN
     Route: 042
     Dates: start: 20151120, end: 20151120
  180. ALPROSTADIL. [Concomitant]
     Active Substance: ALPROSTADIL
     Dosage: 10 UG, PRN
     Route: 042
     Dates: start: 20151102, end: 20151102
  181. SCOPOLAMINE HYDROBROMIDE. [Concomitant]
     Active Substance: SCOPOLAMINE HYDROBROMIDE
     Indication: ABDOMINAL DISCOMFORT
     Dosage: 300 UG, PRN
     Route: 030
     Dates: start: 20151028, end: 20151028
  182. HUMAN ALBUMIN [Concomitant]
     Active Substance: ALBUMIN HUMAN
     Dosage: 20 G, PRN
     Route: 042
     Dates: start: 20151109, end: 20151109
  183. COMPOUND SODIUM LACTATE RINGER LACTAT [Concomitant]
     Dosage: 1000 ML, PRN
     Route: 042
     Dates: start: 20151029, end: 20151029
  184. COMPOUND SODIUM LACTATE RINGER LACTAT [Concomitant]
     Dosage: 500 ML, PRN
     Route: 042
     Dates: start: 20151031, end: 20151031
  185. PIPERACILLIN/TAZOBACTAM [Concomitant]
     Active Substance: PIPERACILLIN SODIUM\TAZOBACTAM SODIUM
     Indication: ANTI-INFECTIVE THERAPY
     Dosage: 1 DF, TID
     Route: 042
     Dates: start: 20151121, end: 20151122
  186. PIPERACILLIN/TAZOBACTAM [Concomitant]
     Active Substance: PIPERACILLIN SODIUM\TAZOBACTAM SODIUM
     Dosage: 1 DF, PRN
     Route: 042
     Dates: start: 20151122, end: 20151122
  187. AMBROXOL HYDROCHLORIDE [Concomitant]
     Active Substance: AMBROXOL HYDROCHLORIDE
     Indication: PRODUCTIVE COUGH
     Dosage: 15 MG, TID
     Route: 042
     Dates: start: 20151029, end: 20151105
  188. AMBROXOL HYDROCHLORIDE [Concomitant]
     Active Substance: AMBROXOL HYDROCHLORIDE
     Dosage: 30 MG, PRN
     Route: 042
     Dates: start: 20151120, end: 20151120
  189. DOPAMINE HYDROCHLORIDE. [Concomitant]
     Active Substance: DOPAMINE HYDROCHLORIDE
     Indication: CARDIOVASCULAR INSUFFICIENCY
     Dosage: 10 MG, PRN
     Route: 042
     Dates: start: 20151029, end: 20151030
  190. DOPAMINE HYDROCHLORIDE. [Concomitant]
     Active Substance: DOPAMINE HYDROCHLORIDE
     Dosage: 120 MG, PRN
     Route: 042
     Dates: start: 20151031, end: 20151101
  191. IRON SUCROSE [Concomitant]
     Active Substance: IRON SUCROSE
     Indication: MINERAL SUPPLEMENTATION
     Dosage: 2 DF, QD
     Route: 042
     Dates: start: 20151029, end: 20151029
  192. RECOMBINANT HUMAN ERYTHROPOIETIN [Concomitant]
     Active Substance: ERYTHROPOIETIN
     Dosage: 9999 IU, PRN
     Route: 061
     Dates: start: 20151105, end: 20151105
  193. RECOMBINANT HUMAN ERYTHROPOIETIN [Concomitant]
     Active Substance: ERYTHROPOIETIN
     Dosage: 9999 IU, PRN
     Route: 061
     Dates: start: 20151108, end: 20151108
  194. OMEPRAZOLE SODIUM [Concomitant]
     Active Substance: OMEPRAZOLE SODIUM
     Indication: GASTRITIS PROPHYLAXIS
     Dosage: 40 MG, PRN
     Route: 042
     Dates: start: 20151028, end: 20151028
  195. OMEPRAZOLE SODIUM [Concomitant]
     Active Substance: OMEPRAZOLE SODIUM
     Dosage: 40 MG, BID
     Route: 042
     Dates: start: 20151031, end: 20151103
  196. OMEPRAZOLE SODIUM [Concomitant]
     Active Substance: OMEPRAZOLE SODIUM
     Dosage: 40 MG, BID
     Route: 042
     Dates: start: 20151105, end: 20151121
  197. DOXOFYLLINE [Concomitant]
     Active Substance: DOXOFYLLINE
     Dosage: 200 MG, PRN
     Route: 042
     Dates: start: 20151112, end: 20151112
  198. METHYLPREDNISOLONE NA SUCCINATE [Concomitant]
     Active Substance: METHYLPREDNISOLONE SODIUM SUCCINATE
     Indication: HYPERSENSITIVITY
     Dosage: 80 MG, PRN
     Route: 042
     Dates: start: 20151105, end: 20151105
  199. PHOSPHOCREATINE SODIUM [Concomitant]
     Active Substance: PHOSPHOCREATINE SODIUM
     Indication: PROPHYLAXIS
     Dosage: 2000 MG, PRN
     Route: 042
     Dates: start: 20151029, end: 20151029
  200. MEROPENEM. [Concomitant]
     Active Substance: MEROPENEM
     Indication: ANTI-INFECTIVE THERAPY
     Dosage: 500 MG, PRN
     Route: 042
     Dates: start: 20151112, end: 20151112
  201. CEPHAZOLINE SODIUM [Concomitant]
     Active Substance: CEFAZOLIN SODIUM
     Indication: PRODUCT USED FOR UNKNOWN INDICATION
     Dosage: 500 MG, PRN
     Route: 061
     Dates: start: 20151029, end: 20151029
  202. CEFOTIAM HYDROCHLORIDE [Concomitant]
     Active Substance: CEFOTIAM HYDROCHLORIDE
     Indication: INFECTION PROPHYLAXIS
     Dosage: 2000 MG, BID
     Route: 042
     Dates: start: 20151029, end: 20151104
  203. CICLOSPORIN [Suspect]
     Active Substance: CYCLOSPORINE
     Indication: PROPHYLAXIS AGAINST TRANSPLANT REJECTION
     Dosage: 200 MG, QD
     Route: 065
     Dates: start: 20151103, end: 20151103
  204. MYCOPHENOLATE MOFETIL. [Suspect]
     Active Substance: MYCOPHENOLATE MOFETIL
     Indication: PROPHYLAXIS AGAINST TRANSPLANT REJECTION
     Dosage: 1000 MG, QD
     Route: 065
     Dates: start: 20151028, end: 20151028
  205. METHYLPREDNISOLONE. [Suspect]
     Active Substance: METHYLPREDNISOLONE
     Dosage: 400 MG, QD
     Route: 065
     Dates: start: 20151029, end: 20151029
  206. METHYLPREDNISOLONE. [Suspect]
     Active Substance: METHYLPREDNISOLONE
     Dosage: 400 MG, QD
     Route: 065
     Dates: start: 20151103, end: 20151103
  207. METHYLPREDNISOLONE. [Suspect]
     Active Substance: METHYLPREDNISOLONE
     Dosage: 40 MG, QD
     Route: 065
     Dates: start: 20151105, end: 20151112
  208. PREDNISONE. [Suspect]
     Active Substance: PREDNISONE
     Indication: PROPHYLAXIS AGAINST TRANSPLANT REJECTION
     Dosage: 20 MG, QD
     Route: 065
     Dates: start: 20151031, end: 20151105
  209. TACROLIMUS. [Suspect]
     Active Substance: TACROLIMUS
     Dosage: 1.5 MG, QD
     Route: 065
     Dates: start: 20151109, end: 20151110
  210. BETALOC [Concomitant]
     Active Substance: METOPROLOL TARTRATE
     Dosage: 5 MG, PRN
     Route: 048
     Dates: start: 20151031, end: 20151031
  211. CANCIDAS [Concomitant]
     Active Substance: CASPOFUNGIN ACETATE
     Indication: ANTI-INFECTIVE THERAPY
     Dosage: 70 MG, PRN
     Route: 042
     Dates: start: 20151117, end: 20151117
  212. OSELTAMIVIR PHOSPHATE. [Concomitant]
     Active Substance: OSELTAMIVIR PHOSPHATE
     Indication: ANTIVIRAL PROPHYLAXIS
     Dosage: 150 MG, PRN
     Route: 048
     Dates: start: 20151114, end: 20151114
  213. NIKETHAMIDE [Concomitant]
     Active Substance: NIKETHAMIDE
     Indication: PRODUCT USED FOR UNKNOWN INDICATION
     Dosage: 375 MG, PRN
     Route: 042
     Dates: start: 20151120, end: 20151120
  214. ALPROSTADIL. [Concomitant]
     Active Substance: ALPROSTADIL
     Dosage: 10 UG, PRN
     Route: 042
     Dates: start: 20151029, end: 20151029
  215. COMPOUND SODIUM LACTATE RINGER LACTAT [Concomitant]
     Indication: PRODUCT USED FOR UNKNOWN INDICATION
     Dosage: 2000 ML, PRN
     Route: 042
     Dates: start: 20151029, end: 20151029
  216. SODIUM BICARBONATE. [Concomitant]
     Active Substance: SODIUM BICARBONATE
     Indication: PRODUCT USED FOR UNKNOWN INDICATION
     Dosage: 125 ML, PRN
     Route: 042
     Dates: start: 20151120, end: 20151120
  217. APO NITROGLYCERIN [Concomitant]
     Dosage: 10 MG, PRN
     Route: 042
     Dates: start: 20151101, end: 20151102
  218. AMBROXOL HYDROCHLORIDE [Concomitant]
     Active Substance: AMBROXOL HYDROCHLORIDE
     Dosage: 150 MG, QD
     Route: 042
     Dates: start: 20151117, end: 20151120
  219. DOPAMINE HYDROCHLORIDE. [Concomitant]
     Active Substance: DOPAMINE HYDROCHLORIDE
     Indication: BLOOD PRESSURE INCREASED
     Dosage: 10 MG, QD
     Route: 042
     Dates: start: 20151030, end: 20151105
  220. MAGNESIUM ISOGLYCYRRHIZINATE [Concomitant]
     Active Substance: MAGNESIUM ISOGLYCYRRHIZINATE
     Dosage: 40 MG, QD
     Route: 042
     Dates: start: 20151029, end: 20151031
  221. MAGNESIUM ISOGLYCYRRHIZINATE [Concomitant]
     Active Substance: MAGNESIUM ISOGLYCYRRHIZINATE
     Dosage: 40 ML, PRN
     Route: 042
     Dates: start: 20151121, end: 20151121
  222. IRON SUCROSE [Concomitant]
     Active Substance: IRON SUCROSE
     Dosage: 1 DF, QD
     Route: 042
     Dates: start: 20151105, end: 20151113
  223. DEPAKINE [Concomitant]
     Active Substance: VALPROATE SODIUM
     Dosage: 3 DF, PRN
     Route: 042
     Dates: start: 20151119, end: 20151119
  224. HEPARIN SODIUM. [Concomitant]
     Active Substance: HEPARIN SODIUM
     Indication: ANTICOAGULANT THERAPY
     Dosage: 2500 IU, PRN
     Route: 042
     Dates: start: 20151031, end: 20151031
  225. COENZYME COMPLEX [Concomitant]
     Active Substance: UNSPECIFIED INGREDIENT
     Indication: SUPPLEMENTATION THERAPY
     Dosage: 2 DF, PRN
     Route: 042
     Dates: start: 20151029, end: 20151029
  226. MEROPENEM. [Concomitant]
     Active Substance: MEROPENEM
     Dosage: 500 MG, TID
     Route: 042
     Dates: start: 20151117, end: 20151121
  227. PENICILLIN [Concomitant]
     Active Substance: PENICILLIN
     Indication: HYPERSENSITIVITY
     Dosage: 80 IU, PRN
     Route: 042
     Dates: start: 20151121, end: 20151121
  228. TEICOPLANIN [Concomitant]
     Active Substance: TEICOPLANIN
     Dosage: 200 MG, QD
     Route: 042
     Dates: start: 20151117, end: 20151120
  229. FUROSEMIDE. [Concomitant]
     Active Substance: FUROSEMIDE
     Dosage: 40 MG, PRN
     Route: 042
     Dates: start: 20151121, end: 20151121
  230. LEVOCARNITINE. [Concomitant]
     Active Substance: LEVOCARNITINE
     Indication: PRODUCT USED FOR UNKNOWN INDICATION
     Dosage: 2 DF, PRN
     Route: 042
     Dates: start: 20151029, end: 20151029
  231. LEVOFLOXACIN. [Concomitant]
     Active Substance: LEVOFLOXACIN
     Indication: INFLAMMATION
     Dosage: 100 ML, PRN
     Route: 042
     Dates: start: 20151028, end: 20151028
  232. LEVOFLOXACIN. [Concomitant]
     Active Substance: LEVOFLOXACIN
     Indication: ANTI-INFECTIVE THERAPY
     Dosage: 100 ML, PRN
     Route: 042
     Dates: start: 20151029, end: 20151029

REACTIONS (13)
  - Platelet count decreased [Unknown]
  - Blood urea increased [Unknown]
  - C-reactive protein increased [Unknown]
  - Blood glucose increased [Unknown]
  - Blood albumin decreased [Unknown]
  - Protein urine present [Unknown]
  - Alanine aminotransferase increased [Unknown]
  - Aspartate aminotransferase increased [Unknown]
  - Red blood cells urine positive [Unknown]
  - Neutrophil count decreased [Unknown]
  - Diarrhoea [Recovering/Resolving]
  - Haemoglobin decreased [Unknown]
  - Lymphocyte count decreased [Unknown]

NARRATIVE: CASE EVENT DATE: 20151031
